FAERS Safety Report 5620055-6 (Version None)
Quarter: 2008Q1

REPORT INFORMATION
  Report Type: 
  Country: None (occurrence: None)
  Receive Date: 20080208
  Receipt Date: 20080130
  Transmission Date: 20080703
  Serious: Yes (Other)
  Sender: FDA-Public Use
  Company Number: US-JNJFOC-20060304496

PATIENT
  Sex: Female
  Weight: 63.5 kg

DRUGS (1)
  1. ARESTIN [Suspect]
     Indication: PERIODONTITIS
     Route: 004

REACTIONS (14)
  - ARTHRALGIA [None]
  - BURNING SENSATION [None]
  - DRUG EFFECT DECREASED [None]
  - DYSGEUSIA [None]
  - EMOTIONAL DISORDER [None]
  - HEADACHE [None]
  - HYPERSENSITIVITY [None]
  - JOINT SWELLING [None]
  - MUSCULAR WEAKNESS [None]
  - MYALGIA [None]
  - NAUSEA [None]
  - OEDEMA PERIPHERAL [None]
  - RASH [None]
  - TINNITUS [None]
